FAERS Safety Report 4746773-X (Version None)
Quarter: 2005Q3

REPORT INFORMATION
  Report Type: 
  Country: None (occurrence: None)
  Receive Date: 20050815
  Receipt Date: 20050809
  Transmission Date: 20060218
  Serious: Yes (Hospitalization, Other)
  Sender: FDA-Public Use
  Company Number: 200510497BNE

PATIENT
  Sex: Male

DRUGS (5)
  1. NIFEDIPINE [Suspect]
     Dates: start: 19930101, end: 20050705
  2. ASPIRIN [Suspect]
  3. APROVEL (IRBESARTAN) [Suspect]
     Dosage: 150 MG, TOTAL DAILY
  4. BENDROFLUMETHIAZIDE [Suspect]
     Dosage: 2.5 MG, TOTAL DAILY
  5. ASASANTIN [Suspect]

REACTIONS (2)
  - BLADDER CALCULUS REMOVAL [None]
  - RENAL FAILURE [None]
